FAERS Safety Report 11682871 (Version 2)
Quarter: 2016Q1

REPORT INFORMATION
  Report Type: Spontaneous
  Country: US (occurrence: US)
  Receive Date: 20151029
  Receipt Date: 20160317
  Transmission Date: 20160525
  Serious: No
  Sender: FDA-Public Use
  Company Number: US-TEVA-603692ACC

PATIENT
  Age: 29 Year
  Sex: Female

DRUGS (1)
  1. PARAGARD T 380A [Suspect]
     Active Substance: COPPER
     Indication: CONTRACEPTION
     Route: 015
     Dates: start: 20140806, end: 20151026

REACTIONS (2)
  - Device breakage [Unknown]
  - Pelvic pain [Unknown]

NARRATIVE: CASE EVENT DATE: 20151020
